FAERS Safety Report 19849870 (Version 2)
Quarter: 2021Q4

REPORT INFORMATION
  Report Type: Spontaneous
  Country: US (occurrence: US)
  Receive Date: 20210917
  Receipt Date: 20211014
  Transmission Date: 20220303
  Serious: No
  Sender: FDA-Public Use
  Company Number: US-PFIZER INC-202101076989

PATIENT
  Age: 52 Year
  Sex: Female
  Weight: 76.2 kg

DRUGS (1)
  1. GENOTROPIN [Suspect]
     Active Substance: SOMATROPIN
     Indication: Growth hormone deficiency
     Dosage: 0.3 MG, DAILY
     Dates: start: 20210730

REACTIONS (3)
  - Weight increased [Unknown]
  - Drug dose omission by device [Unknown]
  - Device use error [Unknown]
